FAERS Safety Report 9285754 (Version 2)
Quarter: 2013Q2

REPORT INFORMATION
  Report Type: Spontaneous
  Country: IT (occurrence: IT)
  Receive Date: 20130513
  Receipt Date: 20130625
  Transmission Date: 20140414
  Serious: Yes (Hospitalization)
  Sender: FDA-Public Use
  Company Number: IT-PFIZER INC-2013146005

PATIENT
  Age: 84 Year
  Sex: Female

DRUGS (6)
  1. TAZOCIN [Suspect]
     Indication: BRONCHOPNEUMONIA
     Dosage: 13.5 G DAILY
     Route: 042
     Dates: start: 20130308
  2. LASIX [Concomitant]
  3. K-FLEBO [Concomitant]
  4. COUMADIN [Concomitant]
  5. DEPONIT [Concomitant]
  6. DILATREND [Concomitant]

REACTIONS (2)
  - Acute hepatic failure [Recovering/Resolving]
  - Transaminases increased [Recovering/Resolving]
